FAERS Safety Report 16537933 (Version 3)
Quarter: 2019Q3

REPORT INFORMATION
  Report Type: Report from Study
  Country: KR (occurrence: KR)
  Receive Date: 20190708
  Receipt Date: 20190903
  Transmission Date: 20191004
  Serious: Yes (Hospitalization)
  Sender: FDA-Public Use
  Company Number: KR-SA-2019SA182244

PATIENT
  Age: 66 Year
  Sex: Male

DRUGS (34)
  1. MECKOOL [Concomitant]
     Dosage: 10 UNK
     Dates: start: 20190413
  2. DEXAMETHASONE. [Concomitant]
     Active Substance: DEXAMETHASONE
     Dosage: 12 UNK
     Dates: start: 20190310
  3. DEXAMETHASONE. [Concomitant]
     Active Substance: DEXAMETHASONE
     Dosage: 12 UNK
     Dates: start: 20190329
  4. IRINOTECAN [Suspect]
     Active Substance: IRINOTECAN
     Dosage: 239.04 MG, QCY
     Route: 042
     Dates: start: 20190102, end: 20190102
  5. LEUCOVORIN. [Suspect]
     Active Substance: LEUCOVORIN
     Indication: COLORECTAL CANCER METASTATIC
     Dosage: 445.2 MG, QCY
     Route: 042
     Dates: start: 20190617, end: 20190617
  6. ATROPIN [ATROPINE] [Concomitant]
     Indication: PREMEDICATION
     Dosage: 0.25 MG
     Dates: start: 20190102
  7. DEXAMETHASONE. [Concomitant]
     Active Substance: DEXAMETHASONE
     Indication: PREMEDICATION
     Dosage: 8 MG
     Dates: start: 20190102
  8. DEXAMETHASONE. [Concomitant]
     Active Substance: DEXAMETHASONE
     Dosage: 12 UNK
     Dates: start: 20190413
  9. DEXAMETHASONE. [Concomitant]
     Active Substance: DEXAMETHASONE
     Dosage: 12 MG
     Dates: start: 20190516
  10. DEXAMETHASONE. [Concomitant]
     Active Substance: DEXAMETHASONE
     Dosage: 12 UNK
     Dates: start: 20190531, end: 20190603
  11. AFLIBERCEPT [Suspect]
     Active Substance: AFLIBERCEPT
     Indication: COLORECTAL CANCER METASTATIC
     Dosage: 221.2 MG, QCY
     Route: 042
     Dates: start: 20190617, end: 20190617
  12. LEUCOVORIN. [Suspect]
     Active Substance: LEUCOVORIN
     Dosage: 531.2 MG, QCY
     Route: 042
     Dates: start: 20190102, end: 20190102
  13. FLUOROURACIL. [Suspect]
     Active Substance: FLUOROURACIL
     Indication: COLORECTAL CANCER METASTATIC
     Dosage: 1780.8 MG, QCY
     Route: 042
     Dates: start: 20190617, end: 20190617
  14. FLUOROURACIL. [Suspect]
     Active Substance: FLUOROURACIL
     Dosage: 2124.8 MG, QCY
     Route: 042
     Dates: start: 20190102, end: 20190102
  15. ALOXI [Concomitant]
     Active Substance: PALONOSETRON HYDROCHLORIDE
     Indication: PREMEDICATION
     Dosage: 0.25 MG
     Dates: start: 20190102
  16. DEXAMETHASONE. [Concomitant]
     Active Substance: DEXAMETHASONE
     Dosage: 12 UNK
     Dates: start: 20190428
  17. IRINOTECAN [Suspect]
     Active Substance: IRINOTECAN
     Indication: COLORECTAL CANCER METASTATIC
     Dosage: 200.34 MG, QCY
     Route: 042
     Dates: start: 20190617, end: 20190617
  18. MECKOOL [Concomitant]
     Dosage: 10 UNK
     Dates: start: 20190310
  19. MECKOOL [Concomitant]
     Dosage: 12 UNK
     Dates: start: 20190329
  20. MECKOOL [Concomitant]
     Dosage: 10 UNK
     Dates: start: 20190516
  21. DEXAMETHASONE. [Concomitant]
     Active Substance: DEXAMETHASONE
     Dosage: 12 UNK
     Dates: start: 20190218
  22. MECKOOL [Concomitant]
     Indication: PROPHYLAXIS
     Dosage: 10 MG
     Dates: start: 20190102
  23. MECKOOL [Concomitant]
     Dosage: 10 UNK
     Dates: start: 20190203
  24. MECKOOL [Concomitant]
     Dosage: 10 UNK
     Dates: start: 20190116
  25. MECKOOL [Concomitant]
     Dosage: 12 UNK
     Dates: start: 20190617
  26. DEXAMETHASONE. [Concomitant]
     Active Substance: DEXAMETHASONE
     Dosage: 10 UNK
     Dates: start: 20190617
  27. ONDANSETRON [Concomitant]
     Active Substance: ONDANSETRON
     Indication: PROPHYLAXIS
     Dosage: 16 MG
     Dates: start: 20190310
  28. MECKOOL [Concomitant]
     Dosage: 10 UNK
     Dates: start: 20190218
  29. MECKOOL [Concomitant]
     Dosage: 12 UNK
     Dates: start: 20190428
  30. MECKOOL [Concomitant]
     Dosage: 10 UNK
     Dates: start: 20190531, end: 20190603
  31. AFLIBERCEPT [Suspect]
     Active Substance: AFLIBERCEPT
     Dosage: 241 MG, QCY
     Route: 042
     Dates: start: 20190102, end: 20190102
  32. MECKOOL [Concomitant]
     Dosage: 10 UNK
     Dates: start: 20190116
  33. DEXAMETHASONE. [Concomitant]
     Active Substance: DEXAMETHASONE
     Dosage: 12 UNK
     Dates: start: 20190116
  34. DEXAMETHASONE. [Concomitant]
     Active Substance: DEXAMETHASONE
     Dosage: 12 MG
     Dates: start: 20190203

REACTIONS (1)
  - Large intestine perforation [Recovered/Resolved]

NARRATIVE: CASE EVENT DATE: 20190625
